FAERS Safety Report 15644005 (Version 6)
Quarter: 2019Q2

REPORT INFORMATION
  Report Type: Spontaneous
  Country: CA (occurrence: CA)
  Receive Date: 20181121
  Receipt Date: 20190419
  Transmission Date: 20190711
  Serious: Yes (Hospitalization, Other)
  Sender: FDA-Public Use
  Company Number: CA-PFIZER INC-2018451882

PATIENT
  Age: 70 Year
  Sex: Male

DRUGS (3)
  1. RISEDRONATE [Concomitant]
     Active Substance: RISEDRONATE SODIUM
     Indication: BONE DISORDER
     Dosage: 70 MG, WEEKLY
  2. METHOTREXATE SODIUM. [Suspect]
     Active Substance: METHOTREXATE SODIUM
     Dosage: 20 MG, WEEKLY
     Route: 048
     Dates: start: 2013, end: 2018
  3. LEFLUNOMIDE. [Concomitant]
     Active Substance: LEFLUNOMIDE
     Dosage: 10 MG, DAILY
     Route: 048
     Dates: start: 2013, end: 2018

REACTIONS (5)
  - Pain in extremity [Unknown]
  - Prostatomegaly [Unknown]
  - Back pain [Not Recovered/Not Resolved]
  - Intervertebral disc disorder [Recovered/Resolved]
  - Drug ineffective [Unknown]
